FAERS Safety Report 17720798 (Version 9)
Quarter: 2021Q3

REPORT INFORMATION
  Report Type: Report from Study
  Country: US (occurrence: US)
  Receive Date: 20200428
  Receipt Date: 20210906
  Transmission Date: 20211014
  Serious: Yes (Other)
  Sender: FDA-Public Use
  Company Number: NVSC2020US114079

PATIENT
  Sex: Female

DRUGS (2)
  1. TASIGNA [Suspect]
     Active Substance: NILOTINIB
     Indication: PRODUCT USED FOR UNKNOWN INDICATION
     Dosage: UNK
     Route: 065
  2. GLEEVEC [Suspect]
     Active Substance: IMATINIB MESYLATE
     Indication: PRODUCT USED FOR UNKNOWN INDICATION
     Dosage: UNK
     Route: 065

REACTIONS (16)
  - Hip fracture [Unknown]
  - Fractured coccyx [Unknown]
  - Infection [Unknown]
  - Malaise [Unknown]
  - Red blood cell count increased [Unknown]
  - Fear of falling [Unknown]
  - Fall [Unknown]
  - Dizziness [Unknown]
  - Coccydynia [Unknown]
  - Product dose omission issue [Unknown]
  - Pain [Unknown]
  - Leukaemia [Unknown]
  - Illness [Unknown]
  - Oropharyngeal pain [Unknown]
  - Headache [Unknown]
  - Pain in extremity [Unknown]
